FAERS Safety Report 7283186-3 (Version None)
Quarter: 2011Q1

REPORT INFORMATION
  Report Type: 
  Country: None (occurrence: None)
  Receive Date: 20110209
  Receipt Date: 20110127
  Transmission Date: 20110831
  Serious: Yes (Other)
  Sender: FDA-Public Use
  Company Number: PHHY2011CA08265

PATIENT
  Sex: Female

DRUGS (2)
  1. ACLASTA [Suspect]
     Indication: OSTEOPOROSIS
     Dosage: UNK
     Dates: start: 20090114
  2. ACLASTA [Suspect]
     Dosage: UNK
     Dates: start: 20100128

REACTIONS (3)
  - FATIGUE [None]
  - BRADYCARDIA [None]
  - CYANOSIS [None]
